FAERS Safety Report 6695725-1 (Version None)
Quarter: 2010Q2

REPORT INFORMATION
  Report Type: 
  Country: None (occurrence: None)
  Receive Date: 20100426
  Receipt Date: 20100415
  Transmission Date: 20101027
  Serious: Yes (Other)
  Sender: FDA-Public Use
  Company Number: US-BAYER-201017972NA

PATIENT
  Age: 28 Year
  Sex: Female

DRUGS (1)
  1. MIRENA [Suspect]
     Indication: POLYCYSTIC OVARIES
     Dosage: FREQUENCY: CONTINUOUS
     Route: 015
     Dates: start: 20090427

REACTIONS (9)
  - ABDOMINAL DISTENSION [None]
  - ABDOMINAL PAIN [None]
  - DEPRESSED MOOD [None]
  - DYSPAREUNIA [None]
  - HOT FLUSH [None]
  - MOOD SWINGS [None]
  - MYALGIA [None]
  - NEPHROLITHIASIS [None]
  - OLIGOMENORRHOEA [None]
